FAERS Safety Report 15458985 (Version 1)
Quarter: 2018Q4

REPORT INFORMATION
  Report Type: Spontaneous
  Country: US (occurrence: US)
  Receive Date: 20181001
  Receipt Date: 20181001
  Transmission Date: 20190204
  Serious: No
  Sender: FDA-Public Use
  Company Number: None

PATIENT
  Age: 57 Year
  Sex: Female
  Weight: 61.69 kg

DRUGS (1)
  1. ALBUTEROL SULFATE 0.083% 3ML NEB NEPHRON [Suspect]
     Active Substance: ALBUTEROL SULFATE
     Indication: ASTHMA
     Dosage: ?          QUANTITY:1 VIAL;OTHER ROUTE:INHALLATION?
     Route: 055

REACTIONS (4)
  - Blood glucose increased [None]
  - Headache [None]
  - Heart rate increased [None]
  - Hypertension [None]
